FAERS Safety Report 9848927 (Version 2)
Quarter: 2014Q1

REPORT INFORMATION
  Report Type: Spontaneous
  Country: DE (occurrence: DE)
  Receive Date: 20140128
  Receipt Date: 20140205
  Transmission Date: 20141002
  Serious: Yes (Congenital Anomaly)
  Sender: FDA-Public Use
  Company Number: DE-RANBAXY-2014RR-77496

PATIENT
  Age: 1 Day
  Sex: Male

DRUGS (2)
  1. LORATADINE [Suspect]
     Indication: HYPERSENSITIVITY
     Dosage: 10 MG, QD, DURING GESTATIONAL WEEKS 0-39.5
     Route: 064
  2. SALBUTAMOL [Concomitant]
     Indication: HYPERSENSITIVITY
     Dosage: DURING GESTATIONAL WEEKS 0-39.5
     Route: 064

REACTIONS (1)
  - Hypospadias [Recovered/Resolved with Sequelae]
